FAERS Safety Report 13825040 (Version 2)
Quarter: 2017Q3

REPORT INFORMATION
  Report Type: Spontaneous
  Country: IT (occurrence: IT)
  Receive Date: 20170802
  Receipt Date: 20170803
  Transmission Date: 20171127
  Serious: Yes (Hospitalization, Other)
  Sender: FDA-Public Use
  Company Number: IT-MYLANLABS-2017M1046612

PATIENT

DRUGS (2)
  1. FUROSEMIDE. [Suspect]
     Active Substance: FUROSEMIDE
     Indication: DRUG USE DISORDER
     Route: 065
  2. SENNA                              /00142201/ [Suspect]
     Active Substance: SENNA LEAF
     Indication: DRUG USE DISORDER
     Route: 065

REACTIONS (5)
  - Conduction disorder [Recovered/Resolved]
  - Rhabdomyolysis [Recovered/Resolved]
  - Paralysis [Recovered/Resolved]
  - Drug abuse [Recovered/Resolved]
  - Hypokalaemia [Recovered/Resolved]
